FAERS Safety Report 10052076 (Version 1)
Quarter: 2014Q2

REPORT INFORMATION
  Report Type: Spontaneous
  Country: FR (occurrence: FR)
  Receive Date: 20140402
  Receipt Date: 20140402
  Transmission Date: 20141212
  Serious: Yes (Hospitalization, Other)
  Sender: FDA-Public Use
  Company Number: FR-009507513-1403FRA012227

PATIENT
  Age: 35 Year
  Sex: Female
  Weight: 145 kg

DRUGS (3)
  1. CANCIDAS [Suspect]
     Indication: CANDIDA INFECTION
     Dosage: UNK
     Route: 042
     Dates: start: 20140115, end: 20140129
  2. NOZINAN [Suspect]
     Dosage: 100 MG, QD
     Route: 042
     Dates: start: 20140126, end: 20140129
  3. INEXIUM [Suspect]
     Dosage: 40 MG, ONCE
     Route: 042
     Dates: start: 20140129, end: 20140129

REACTIONS (2)
  - Agranulocytosis [Recovered/Resolved]
  - Bone marrow failure [Recovering/Resolving]
